FAERS Safety Report 8919823 (Version 3)
Quarter: 2012Q4

REPORT INFORMATION
  Report Type: 
  Country: DE (occurrence: DE)
  Receive Date: 20121121
  Receipt Date: 20121231
  Transmission Date: 20130627
  Serious: Yes (Death)
  Sender: FDA-Public Use
  Company Number: DE-RANBAXY-2012RR-62114

PATIENT
  Age: 52 Year
  Sex: Female

DRUGS (7)
  1. AMLODIPINE [Suspect]
     Indication: PRODUCT USED FOR UNKNOWN INDICATION
     Dosage: 2.5 mg on day 1
     Route: 048
  2. AMLODIPINE [Interacting]
     Dosage: 7.5 mg on day 2
     Route: 048
  3. AMLODIPINE [Interacting]
     Indication: PRODUCT USED FOR UNKNOWN INDICATION
     Dosage: 10 mg on day 3
     Route: 048
  4. APONAL [Interacting]
     Indication: PRODUCT USED FOR UNKNOWN INDICATION
     Dosage: 25 mg/day
     Route: 065
  5. APONAL [Interacting]
     Dosage: 100 mg/day
     Route: 065
  6. APONAL [Interacting]
     Indication: PRODUCT USED FOR UNKNOWN INDICATION
     Dosage: 125mg/day
     Route: 065
  7. PROTHIPENDYL [Suspect]
     Indication: PRODUCT USED FOR UNKNOWN INDICATION
     Dosage: double doses on 3 of the last 5 days before death
     Route: 065

REACTIONS (2)
  - Toxicity to various agents [Fatal]
  - Drug interaction [Fatal]
